FAERS Safety Report 4709489-1 (Version None)
Quarter: 2005Q3

REPORT INFORMATION
  Report Type: 
  Country: None (occurrence: None)
  Receive Date: 20050706
  Receipt Date: 20050623
  Transmission Date: 20060218
  Serious: Yes (Hospitalization)
  Sender: FDA-Public Use
  Company Number: 213485

PATIENT
  Age: 69 Year
  Sex: Female
  Weight: 66 kg

DRUGS (5)
  1. MABTHERA (RITUXIMAB)   CONC FOR SOLUTION FOR INFUSION [Suspect]
     Indication: NON-HODGKIN'S LYMPHOMA
     Dosage: 675 MG,
     Dates: start: 20001026
  2. CYCLOPHOSPHAMIDE [Suspect]
     Indication: NON-HODGKIN'S LYMPHOMA
     Dosage: 1350 MG,
     Dates: start: 20001026
  3. DOXORUBICIN HCL [Suspect]
     Indication: NON-HODGKIN'S LYMPHOMA
     Dosage: 90 MG,
     Dates: start: 20001026
  4. VINCRISTINE [Suspect]
     Indication: NON-HODGKIN'S LYMPHOMA
     Dosage: 2 MG,
     Dates: start: 20001026
  5. PREDNISONE [Suspect]
     Indication: NON-HODGKIN'S LYMPHOMA
     Dosage: 500 MG,
     Dates: start: 20001026

REACTIONS (2)
  - FEBRILE NEUTROPENIA [None]
  - URINARY TRACT INFECTION [None]
